FAERS Safety Report 4278019-3 (Version None)
Quarter: 2004Q1

REPORT INFORMATION
  Report Type: 
  Country: None (occurrence: None)
  Receive Date: 20040120
  Receipt Date: 20040105
  Transmission Date: 20041129
  Serious: Yes (Hospitalization)
  Sender: FDA-Public Use
  Company Number: 189967

PATIENT
  Age: 25 Year
  Sex: Female
  Weight: 66.2252 kg

DRUGS (11)
  1. AVONEX [Suspect]
     Indication: MULTIPLE SCLEROSIS
     Dosage: 30 MCG QW IM
     Route: 030
     Dates: start: 20030601, end: 20030801
  2. AVONEX [Suspect]
     Indication: MULTIPLE SCLEROSIS
     Dosage: 30 MCG QW IM
     Route: 030
     Dates: start: 20030801
  3. BACLOFEN [Concomitant]
  4. CELEXA [Concomitant]
  5. NEURONTIN [Concomitant]
  6. OXYBUTYNIN [Concomitant]
  7. SENOKOT [Concomitant]
  8. KLONOPIN [Concomitant]
  9. TRAZODONE [Concomitant]
  10. BENADRYL ^WARNER LAMBERT^ /USA/ [Concomitant]
  11. XANAX [Concomitant]

REACTIONS (10)
  - CONCUSSION [None]
  - CONTUSION [None]
  - CONVULSION [None]
  - HOT FLUSH [None]
  - INFLUENZA LIKE ILLNESS [None]
  - JOINT DISLOCATION [None]
  - MIGRAINE [None]
  - MULTIPLE SCLEROSIS RELAPSE [None]
  - PAIN [None]
  - ROAD TRAFFIC ACCIDENT [None]
